FAERS Safety Report 10328153 (Version 2)
Quarter: 2014Q3

REPORT INFORMATION
  Report Type: Spontaneous
  Country: US (occurrence: US)
  Receive Date: 20140721
  Receipt Date: 20140811
  Transmission Date: 20150326
  Serious: No
  Sender: FDA-Public Use
  Company Number: US-ASTRAZENECA-2014SE50170

PATIENT
  Age: 25337 Day
  Sex: Female
  Weight: 48.5 kg

DRUGS (6)
  1. TODORZA PRESS AIR [Concomitant]
     Indication: ASTHMA
     Dosage: NOT ASKED DAILY
     Route: 055
     Dates: start: 20140619
  2. TODORZA PRESS AIR [Concomitant]
     Indication: COUGH
     Dosage: NOT ASKED DAILY
     Route: 055
     Dates: start: 20140619
  3. PULMICORT FLEXHALER [Suspect]
     Active Substance: BUDESONIDE
     Indication: COUGH
     Dosage: 180MCG 1 PUFF TWO TIMES A DAY
     Route: 055
     Dates: start: 20140619, end: 20140626
  4. PULMICORT FLEXHALER [Suspect]
     Active Substance: BUDESONIDE
     Indication: ASTHMA
     Dosage: 180MCG 1 PUFF TWO TIMES A DAY
     Route: 055
     Dates: start: 20140619, end: 20140626
  5. PULMICORT FLEXHALER [Suspect]
     Active Substance: BUDESONIDE
     Indication: ASTHMA
     Dosage: 180MCG 1 PUFF DAILY
     Route: 055
     Dates: start: 20140626
  6. PULMICORT FLEXHALER [Suspect]
     Active Substance: BUDESONIDE
     Indication: COUGH
     Dosage: 180MCG 1 PUFF DAILY
     Route: 055
     Dates: start: 20140626

REACTIONS (3)
  - Device misuse [Unknown]
  - Off label use [Unknown]
  - Insomnia [Unknown]

NARRATIVE: CASE EVENT DATE: 20140626
